FAERS Safety Report 4990418-0 (Version None)
Quarter: 2006Q2

REPORT INFORMATION
  Report Type: 
  Country: None (occurrence: None)
  Receive Date: 20060427
  Receipt Date: 20060413
  Transmission Date: 20061013
  Serious: Yes (Hospitalization, Other)
  Sender: FDA-Public Use
  Company Number: DEU-2006-0002140

PATIENT
  Age: 47 Year
  Sex: Male

DRUGS (4)
  1. OXYCODONE HCL [Suspect]
     Indication: BACK PAIN
     Dosage: 120 MG DAILY
  2. ATROPINE [Concomitant]
  3. DIPHENOXYLATE (DIPHENOXYLATE) [Concomitant]
  4. DEXTROSE INFUSION FLUID 5% (GLUCOSE) [Concomitant]

REACTIONS (29)
  - ANXIETY [None]
  - BOWEL SOUNDS ABNORMAL [None]
  - CRYSTAL URINE PRESENT [None]
  - DRUG DEPENDENCE [None]
  - DRUG WITHDRAWAL SYNDROME [None]
  - DYSARTHRIA [None]
  - ELECTROLYTE IMBALANCE [None]
  - GRAND MAL CONVULSION [None]
  - HAEMODIALYSIS [None]
  - HYPERGLYCAEMIA [None]
  - HYPOTENSION [None]
  - HYPOXIA [None]
  - LETHARGY [None]
  - LOSS OF CONSCIOUSNESS [None]
  - MALAISE [None]
  - MASTOIDITIS [None]
  - MENINGITIS [None]
  - MENTAL STATUS CHANGES [None]
  - METABOLIC ACIDOSIS [None]
  - NAUSEA [None]
  - PNEUMONIA ASPIRATION [None]
  - POISONING [None]
  - RENAL FAILURE ACUTE [None]
  - RENAL TUBULAR DISORDER [None]
  - RESPIRATORY DISTRESS [None]
  - SOMNOLENCE [None]
  - SUICIDAL IDEATION [None]
  - VENTRICULAR TACHYCARDIA [None]
  - VOMITING [None]
